FAERS Safety Report 7199404-6 (Version None)
Quarter: 2010Q4

REPORT INFORMATION
  Report Type: 
  Country: None (occurrence: None)
  Receive Date: 20101223
  Receipt Date: 20101223
  Transmission Date: 20110411
  Serious: Yes (Other)
  Sender: FDA-Public Use
  Company Number: None

PATIENT
  Age: 57 Year
  Sex: Male
  Weight: 79.3795 kg

DRUGS (1)
  1. MOVIPREP [Suspect]
     Dosage: 8 OZ 15 WKS ORAL
     Route: 048
     Dates: start: 20101205

REACTIONS (4)
  - DYSPNOEA [None]
  - NAUSEA [None]
  - TREMOR [None]
  - VOMITING [None]
